FAERS Safety Report 17687439 (Version 1)
Quarter: 2020Q2

REPORT INFORMATION
  Report Type: Spontaneous
  Country: GB (occurrence: GB)
  Receive Date: 20200421
  Receipt Date: 20200421
  Transmission Date: 20200714
  Serious: Yes (Death, Other)
  Sender: FDA-Public Use
  Company Number: GB-LUPIN PHARMACEUTICALS INC.-2020-01732

PATIENT
  Age: 96 Year
  Sex: Female

DRUGS (2)
  1. TEICOPLANIN [Concomitant]
     Active Substance: TEICOPLANIN
     Indication: ARTHRITIS INFECTIVE
     Dosage: UNK
     Route: 065
  2. SULFAMETHOXAZOLE AND TRIMETHOPRIM [Suspect]
     Active Substance: SULFAMETHOXAZOLE\TRIMETHOPRIM
     Indication: ARTHRITIS INFECTIVE
     Dosage: UNK
     Route: 065

REACTIONS (1)
  - Disseminated intravascular coagulation [Fatal]
